FAERS Safety Report 5113702-9 (Version None)
Quarter: 2006Q3

REPORT INFORMATION
  Report Type: 
  Country: None (occurrence: None)
  Receive Date: 20060921
  Receipt Date: 20060911
  Transmission Date: 20061208
  Serious: Yes (Hospitalization)
  Sender: FDA-Public Use
  Company Number: 0104-2872

PATIENT
  Age: 51 Year
  Sex: Female
  Weight: 104.3273 kg

DRUGS (6)
  1. ADVICOR [Suspect]
     Indication: BLOOD CHOLESTEROL
     Dosage: 1 TABLET(S) QHS PO
     Route: 048
     Dates: end: 20060801
  2. METOPROLOL TARTRATE [Suspect]
     Dosage: 1 TABLET(S) QHS PO
     Route: 048
     Dates: end: 20060801
  3. SYNTHROID [Concomitant]
  4. HYDROCHLOROTHIAZDE TAB [Concomitant]
  5. PEPCID [Concomitant]
  6. UNKNOWN PAIN MEDICATION [Concomitant]

REACTIONS (2)
  - MYOCARDIAL INFARCTION [None]
  - TREATMENT NONCOMPLIANCE [None]
